FAERS Safety Report 9530965 (Version 1)
Quarter: 2013Q3

REPORT INFORMATION
  Report Type: Spontaneous
  Country: US (occurrence: US)
  Receive Date: 20130918
  Receipt Date: 20130918
  Transmission Date: 20140515
  Serious: Yes (Life-Threatening, Hospitalization)
  Sender: FDA-Public Use
  Company Number: US-BAYER-2013-110548

PATIENT
  Age: 17 Year
  Sex: Female
  Weight: 54.42 kg

DRUGS (5)
  1. OCELLA [Suspect]
  2. NAPROXEN [Concomitant]
     Dosage: 550 MG, UNK
  3. PREVACID [Concomitant]
     Dosage: 30 MG, UNK
     Route: 048
  4. ALLEGRA [Concomitant]
     Dosage: 60 MG, UNK
     Route: 048
  5. NASONEX [Concomitant]

REACTIONS (5)
  - Pulmonary embolism [Recovered/Resolved]
  - Vena cava thrombosis [None]
  - Pelvic venous thrombosis [None]
  - Deep vein thrombosis [None]
  - Thrombophlebitis superficial [None]
